FAERS Safety Report 14884645 (Version 1)
Quarter: 2018Q2

REPORT INFORMATION
  Report Type: Spontaneous
  Country: US (occurrence: US)
  Receive Date: 20180511
  Receipt Date: 20180511
  Transmission Date: 20180711
  Serious: Yes (Other)
  Sender: FDA-Public Use
  Company Number: US-SUNOVION-2018SUN001906

PATIENT
  Sex: Female

DRUGS (3)
  1. BRIVIACT [Concomitant]
     Active Substance: BRIVARACETAM
  2. VIMPAT [Concomitant]
     Active Substance: LACOSAMIDE
  3. APTIOM [Suspect]
     Active Substance: ESLICARBAZEPINE ACETATE
     Indication: SEIZURE
     Dosage: 600 MG, UNK
     Route: 048
     Dates: start: 20180328, end: 20180423

REACTIONS (4)
  - Seizure [Not Recovered/Not Resolved]
  - Eye irritation [Recovered/Resolved]
  - Oral discomfort [Recovered/Resolved]
  - Vulvovaginal burning sensation [Recovered/Resolved]
